FAERS Safety Report 9202850 (Version 1)
Quarter: 2013Q2

REPORT INFORMATION
  Report Type: Spontaneous
  Country: FR (occurrence: FR)
  Receive Date: 20130402
  Receipt Date: 20130402
  Transmission Date: 20140414
  Serious: Yes (Other)
  Sender: FDA-Public Use
  Company Number: FR-AMGEN-FRASP2013021537

PATIENT
  Age: 70 Year
  Sex: Female

DRUGS (5)
  1. VECTIBIX [Suspect]
     Indication: COLON CANCER METASTATIC
     Dosage: (20MG/ML, SOLUTION FOR INFUSION)/550 MG, ALL 15 DAYS
     Route: 042
     Dates: start: 2011, end: 20130214
  2. FOLINIC ACID [Concomitant]
     Indication: COLON CANCER
     Dosage: UNK
  3. 5-FU /00098801/ [Concomitant]
     Indication: COLON CANCER
     Dosage: UNK
  4. IRINOTECAN [Concomitant]
     Indication: COLON CANCER
     Dosage: UNK
  5. AVASTIN /00848101/ [Concomitant]
     Indication: COLON CANCER
     Dosage: UNK
     Dates: start: 2012

REACTIONS (4)
  - Eczema [Recovering/Resolving]
  - Paronychia [Recovering/Resolving]
  - Keratitis [Recovering/Resolving]
  - Diarrhoea [Recovering/Resolving]
